FAERS Safety Report 18799515 (Version 1)
Quarter: 2021Q1

REPORT INFORMATION
  Report Type: Spontaneous
  Country: DE (occurrence: DE)
  Receive Date: 20210128
  Receipt Date: 20210128
  Transmission Date: 20210419
  Serious: Yes (Other)
  Sender: FDA-Public Use
  Company Number: DE-PFIZER INC-2021059185

PATIENT
  Age: 83 Year
  Sex: Female

DRUGS (1)
  1. LATANOPROST. [Suspect]
     Active Substance: LATANOPROST
     Indication: GLAUCOMA
     Dosage: 1 DF, 1X/DAY
     Route: 047
     Dates: start: 2007, end: 2018

REACTIONS (2)
  - Condition aggravated [Not Recovered/Not Resolved]
  - Corneal degeneration [Not Recovered/Not Resolved]
